FAERS Safety Report 5577640-X (Version None)
Quarter: 2007Q4

REPORT INFORMATION
  Report Type: 
  Country: None (occurrence: None)
  Receive Date: 20071231
  Receipt Date: 20071205
  Transmission Date: 20080405
  Serious: Yes (Other)
  Sender: FDA-Public Use
  Company Number: US-BAYER-200717292NA

PATIENT
  Age: 52 Year
  Sex: Female
  Weight: 66 kg

DRUGS (1)
  1. MAGNEVIST [Suspect]
     Indication: NUCLEAR MAGNETIC RESONANCE IMAGING
     Dosage: TOTAL DAILY DOSE: 13 ML  UNIT DOSE: 13 ML
     Route: 042
     Dates: start: 20071205, end: 20071205

REACTIONS (6)
  - DYSPHAGIA [None]
  - DYSPNOEA [None]
  - EYE IRRITATION [None]
  - EYE SWELLING [None]
  - FEELING HOT [None]
  - URTICARIA [None]
